FAERS Safety Report 6854848-4 (Version None)
Quarter: 2010Q3

REPORT INFORMATION
  Report Type: 
  Country: None (occurrence: None)
  Receive Date: 20100717
  Receipt Date: 20080315
  Transmission Date: 20110219
  Serious: No
  Sender: FDA-Public Use
  Company Number: US-PFIZER INC-2008004167

PATIENT
  Sex: Female
  Weight: 64 kg

DRUGS (6)
  1. CHANTIX [Suspect]
     Indication: SMOKING CESSATION THERAPY
     Dates: start: 20070101
  2. ACCUPRIL [Concomitant]
     Indication: HYPERTENSION
  3. LIPITOR [Concomitant]
     Indication: BLOOD CHOLESTEROL INCREASED
  4. XANAX [Concomitant]
     Indication: ANXIETY
  5. XANAX [Concomitant]
     Indication: PANIC ATTACK
  6. ATENOLOL [Concomitant]
     Indication: HYPERTENSION

REACTIONS (7)
  - ABNORMAL DREAMS [None]
  - ANXIETY [None]
  - DISTURBANCE IN ATTENTION [None]
  - DIZZINESS [None]
  - FEELING JITTERY [None]
  - URINARY TRACT INFECTION BACTERIAL [None]
  - VISION BLURRED [None]
